FAERS Safety Report 17935116 (Version 1)
Quarter: 2020Q2

REPORT INFORMATION
  Report Type: Spontaneous
  Country: US (occurrence: US)
  Receive Date: 20200624
  Receipt Date: 20200624
  Transmission Date: 20200714
  Serious: No
  Sender: FDA-Public Use
  Company Number: US-PFIZER INC-2020118878

PATIENT
  Age: 80 Year
  Sex: Female
  Weight: 64.85 kg

DRUGS (1)
  1. ESTRING [Suspect]
     Active Substance: ESTRADIOL
     Indication: BLADDER PROLAPSE
     Dosage: UNK, EVERY 3 MONTHS (RING PLACED EVERY 3 MONTHS)
     Dates: start: 2018

REACTIONS (7)
  - Stress [Unknown]
  - Sneezing [Unknown]
  - Stress urinary incontinence [Unknown]
  - Product use in unapproved indication [Unknown]
  - Cough [Unknown]
  - Urinary incontinence [Recovering/Resolving]
  - Off label use [Unknown]

NARRATIVE: CASE EVENT DATE: 2019
